FAERS Safety Report 17740632 (Version 1)
Quarter: 2020Q2

REPORT INFORMATION
  Report Type: Spontaneous
  Country: US (occurrence: US)
  Receive Date: 20200501
  Receipt Date: 20200501
  Transmission Date: 20200714
  Serious: Yes (Hospitalization)
  Sender: FDA-Public Use
  Company Number: None

PATIENT
  Age: 65 Year
  Sex: Female
  Weight: 53 kg

DRUGS (1)
  1. TERBINAFINE. [Suspect]
     Active Substance: TERBINAFINE
     Indication: TINEA INFECTION
     Route: 048
     Dates: start: 20190814, end: 20190818

REACTIONS (5)
  - Pancreatic duct dilatation [None]
  - Hepatic enzyme increased [None]
  - Cholelithiasis [None]
  - Liver function test increased [None]
  - Pancreatitis acute [None]

NARRATIVE: CASE EVENT DATE: 20190818
